FAERS Safety Report 20815808 (Version 1)
Quarter: 2022Q2

REPORT INFORMATION
  Report Type: Spontaneous
  Country: AE (occurrence: AE)
  Receive Date: 20220511
  Receipt Date: 20220511
  Transmission Date: 20220721
  Serious: Yes (Other)
  Sender: FDA-Public Use
  Company Number: AE-MSNLABS-2022MSNLIT00470

PATIENT

DRUGS (2)
  1. PACLITAXEL [Suspect]
     Active Substance: PACLITAXEL
     Indication: Squamous cell carcinoma of the vagina
     Dosage: 175 MG/M2 EVERY 21 DAYS FOR 3 CYCLES
     Route: 042
  2. CARBOPLATIN [Suspect]
     Active Substance: CARBOPLATIN
     Indication: Squamous cell carcinoma of the vagina
     Route: 065

REACTIONS (5)
  - Metastases to liver [Recovered/Resolved]
  - Metastases to lung [Recovered/Resolved]
  - Lymphadenopathy [Recovered/Resolved]
  - Drug ineffective [Unknown]
  - Disease progression [Unknown]
